FAERS Safety Report 8490399-1 (Version None)
Quarter: 2012Q3

REPORT INFORMATION
  Report Type: 
  Country: None (occurrence: None)
  Receive Date: 20120705
  Receipt Date: 20120702
  Transmission Date: 20120928
  Serious: Yes (Life-Threatening)
  Sender: FDA-Public Use
  Company Number: CA-GILEAD-2012-0056622

PATIENT
  Sex: Male

DRUGS (2)
  1. VIREAD [Suspect]
     Indication: HEPATITIS B
     Dosage: 300 MG, QD
     Route: 048
     Dates: start: 20090101
  2. VIREAD [Suspect]
     Dosage: UNK
     Dates: start: 20100515

REACTIONS (2)
  - LUNG NEOPLASM MALIGNANT [None]
  - BLOOD GLUCOSE INCREASED [None]
